FAERS Safety Report 4525712-0 (Version None)
Quarter: 2004Q4

REPORT INFORMATION
  Report Type: 
  Country: None (occurrence: None)
  Receive Date: 20041116
  Receipt Date: 20041012
  Transmission Date: 20050328
  Serious: No
  Sender: FDA-Public Use
  Company Number: S04-USA-06756-01

PATIENT

DRUGS (1)
  1. NAMENDA [Suspect]

REACTIONS (2)
  - DERMATITIS [None]
  - OEDEMA PERIPHERAL [None]
